FAERS Safety Report 5000072-X (Version None)
Quarter: 2006Q2

REPORT INFORMATION
  Report Type: 
  Country: None (occurrence: None)
  Receive Date: 20060509
  Receipt Date: 20060426
  Transmission Date: 20061013
  Serious: Yes (Other)
  Sender: FDA-Public Use
  Company Number: GB200604001859

PATIENT
  Age: 19 Year
  Sex: Male
  Weight: 68 kg

DRUGS (1)
  1. STRATTERA [Suspect]
     Indication: ATTENTION DEFICIT/HYPERACTIVITY DISORDER
     Dosage: 80 MG , ORAL
     Route: 048
     Dates: start: 20060323, end: 20060330

REACTIONS (3)
  - AGGRESSION [None]
  - DEPRESSED MOOD [None]
  - SUICIDAL IDEATION [None]
